FAERS Safety Report 7983108-3 (Version None)
Quarter: 2011Q4

REPORT INFORMATION
  Report Type: 
  Country: None (occurrence: None)
  Receive Date: 20111215
  Receipt Date: 20111205
  Transmission Date: 20120403
  Serious: Yes (Hospitalization)
  Sender: FDA-Public Use
  Company Number: GB-JNJFOC-20111204464

PATIENT
  Age: 6 Year
  Sex: Male

DRUGS (2)
  1. ACETAMINOPHEN [Suspect]
     Route: 048
  2. ACETAMINOPHEN [Suspect]
     Indication: ANALGESIC THERAPY
     Route: 048
     Dates: start: 20111201

REACTIONS (3)
  - OVERDOSE [None]
  - DRUG INEFFECTIVE [None]
  - MALAISE [None]
